FAERS Safety Report 10688348 (Version 1)
Quarter: 2015Q1

REPORT INFORMATION
  Report Type: Spontaneous
  Country: BR (occurrence: BR)
  Receive Date: 20150102
  Receipt Date: 20150102
  Transmission Date: 20150720
  Serious: Yes (Other)
  Sender: FDA-Public Use
  Company Number: BR-BAUSCH-BL-2015-000037

PATIENT
  Age: 51 Year
  Sex: Female

DRUGS (2)
  1. ZOVIRAX [Suspect]
     Active Substance: ACYCLOVIR
     Indication: HERPES OPHTHALMIC
  2. ZOVIRAX [Suspect]
     Active Substance: ACYCLOVIR
     Indication: HERPES OPHTHALMIC

REACTIONS (1)
  - Iris melanoma [Unknown]
